FAERS Safety Report 9293600 (Version 4)
Quarter: 2013Q3

REPORT INFORMATION
  Report Type: Report from Study
  Country: AU (occurrence: AU)
  Receive Date: 20130516
  Receipt Date: 20130930
  Transmission Date: 20140515
  Serious: Yes (Other)
  Sender: FDA-Public Use
  Company Number: PHHY2013AU030395

PATIENT
  Age: 83 Year
  Sex: Female

DRUGS (4)
  1. ACLASTA [Suspect]
     Dosage: 5 MG
     Route: 042
     Dates: start: 20090430
  2. ACLASTA [Suspect]
     Dosage: 5 MG
     Route: 042
     Dates: start: 20100430
  3. ACLASTA [Suspect]
     Dosage: 5 MG
     Route: 042
     Dates: start: 20110407
  4. ACLASTA [Suspect]
     Dosage: 5 MG
     Route: 042
     Dates: start: 20120405

REACTIONS (5)
  - Pelvic fracture [Recovered/Resolved]
  - Upper limb fracture [Recovered/Resolved]
  - Impaired healing [Recovered/Resolved]
  - Fall [Recovered/Resolved]
  - Drug ineffective [Unknown]
